FAERS Safety Report 4402794-8 (Version None)
Quarter: 2004Q3

REPORT INFORMATION
  Report Type: 
  Country: None (occurrence: None)
  Receive Date: 20040721
  Receipt Date: 20031219
  Transmission Date: 20050211
  Serious: No
  Sender: FDA-Public Use
  Company Number: US-BRISTOL-MYERS SQUIBB COMPANY-12462958

PATIENT
  Age: 41 Year
  Sex: Female
  Weight: 83 kg

DRUGS (5)
  1. ZERIT [Suspect]
     Indication: HIV INFECTION
     Route: 048
     Dates: start: 20030909, end: 20031014
  2. SUSTIVA [Concomitant]
  3. EPIVIR [Concomitant]
  4. DAPSONE [Concomitant]
  5. PAXIL [Concomitant]

REACTIONS (3)
  - HYPOACUSIS [None]
  - RASH PAPULAR [None]
  - SENSATION OF BLOCK IN EAR [None]
